FAERS Safety Report 13609362 (Version 1)
Quarter: 2017Q2

REPORT INFORMATION
  Report Type: Spontaneous
  Country: US (occurrence: US)
  Receive Date: 20170602
  Receipt Date: 20170602
  Transmission Date: 20170830
  Serious: No
  Sender: FDA-Public Use
  Company Number: US-LANNETT COMPANY, INC.-US-2017LAN000391

PATIENT
  Age: 45 Year
  Sex: Female

DRUGS (1)
  1. PHENTERMINE HYDROCHLORIDE (37.5MG) [Suspect]
     Active Substance: PHENTERMINE HYDROCHLORIDE
     Indication: PRODUCT USED FOR UNKNOWN INDICATION
     Dosage: 37.5 MG, UNK

REACTIONS (1)
  - Cough [Unknown]
